FAERS Safety Report 9456665 (Version 2)
Quarter: 2013Q3

REPORT INFORMATION
  Report Type: Spontaneous
  Country: US (occurrence: US)
  Receive Date: 20130813
  Receipt Date: 20130829
  Transmission Date: 20140515
  Serious: No
  Sender: FDA-Public Use
  Company Number: US-009507513-1308USA005760

PATIENT
  Age: 75 Year
  Sex: Female
  Weight: 81.63 kg

DRUGS (7)
  1. CLARITIN LIQUIGELS [Suspect]
     Indication: HYPERSENSITIVITY
     Dosage: 10 MG, HS
     Route: 048
     Dates: start: 20130804, end: 20130811
  2. CLARITIN LIQUIGELS [Suspect]
     Indication: MEDICAL OBSERVATION
  3. QVAR [Concomitant]
     Indication: ASTHMA
     Dosage: UNK, UNKNOWN
  4. COMBIVENT [Concomitant]
     Indication: ASTHMA
     Dosage: UNK, UNKNOWN
  5. PRILOSEC [Concomitant]
     Indication: PRODUCT USED FOR UNKNOWN INDICATION
     Dosage: UNK, UNKNOWN
  6. OMEGA-3 MARINE TRIGLYCERIDES [Concomitant]
     Indication: PRODUCT USED FOR UNKNOWN INDICATION
     Dosage: UNK, UNKNOWN
  7. CALCIUM (UNSPECIFIED) (+) VITAMIN D (UNSPECIFIED) [Concomitant]
     Indication: PRODUCT USED FOR UNKNOWN INDICATION
     Dosage: UNK, UNKNOWN

REACTIONS (4)
  - Nasal congestion [Recovering/Resolving]
  - Bronchial secretion retention [Recovering/Resolving]
  - Unevaluable event [Not Recovered/Not Resolved]
  - Feeling abnormal [Not Recovered/Not Resolved]
